FAERS Safety Report 4716430-4 (Version None)
Quarter: 2005Q3

REPORT INFORMATION
  Report Type: 
  Country: None (occurrence: None)
  Receive Date: 20050719
  Receipt Date: 20050707
  Transmission Date: 20060218
  Serious: Yes (Death)
  Sender: FDA-Public Use
  Company Number: US-JNJFOC-20050701625

PATIENT
  Sex: Female
  Weight: 62.14 kg

DRUGS (18)
  1. INFLIXIMAB [Suspect]
     Indication: RHEUMATOID ARTHRITIS
     Route: 042
  2. NIFEDIPINE [Concomitant]
     Dosage: DAILY
  3. ZOCOR [Concomitant]
     Dosage: DAILY
  4. ALTACE [Concomitant]
     Dosage: DAILY
  5. NIACIN [Concomitant]
     Dosage: DAILY
  6. MULTI-VITAMIN [Concomitant]
  7. MULTI-VITAMIN [Concomitant]
  8. MULTI-VITAMIN [Concomitant]
  9. MULTI-VITAMIN [Concomitant]
  10. MULTI-VITAMIN [Concomitant]
  11. MULTI-VITAMIN [Concomitant]
  12. MULTI-VITAMIN [Concomitant]
  13. MULTI-VITAMIN [Concomitant]
     Dosage: DAILY
  14. CALCIUM+D [Concomitant]
  15. CALCIUM+D [Concomitant]
  16. ARAVA [Concomitant]
     Dosage: DAILY
  17. ALEVE [Concomitant]
     Dosage: DAILY
  18. FOSAMAX [Concomitant]
     Dosage: WEEKLY

REACTIONS (1)
  - LUNG NEOPLASM MALIGNANT [None]
